FAERS Safety Report 16437483 (Version 1)
Quarter: 2019Q2

REPORT INFORMATION
  Report Type: Spontaneous
  Country: ES (occurrence: ES)
  Receive Date: 20190615
  Receipt Date: 20190615
  Transmission Date: 20190711
  Serious: Yes (Hospitalization, Other)
  Sender: FDA-Public Use
  Company Number: ES-AUROBINDO-AUR-APL-2019-022011

PATIENT

DRUGS (1)
  1. OLMESARTAN FILM COATED TABLETS 40MG [Suspect]
     Active Substance: OLMESARTAN
     Indication: HYPERTENSION
     Dosage: 40 MILLIGRAM, ONCE A DAY
     Route: 048

REACTIONS (6)
  - Prerenal failure [Recovering/Resolving]
  - Metabolic acidosis [Recovering/Resolving]
  - Intra-abdominal fluid collection [Unknown]
  - Intestinal villi atrophy [Unknown]
  - Colitis [Unknown]
  - Diarrhoea [Recovered/Resolved]
